FAERS Safety Report 24764539 (Version 2)
Quarter: 2024Q4

REPORT INFORMATION
  Report Type: Spontaneous
  Country: US (occurrence: US)
  Receive Date: 20241223
  Receipt Date: 20241225
  Transmission Date: 20250115
  Serious: Yes (Hospitalization, Other)
  Sender: ALEXION PHARMACEUTICALS
  Company Number: US-ASTRAZENECA-202412USA016645US

PATIENT
  Age: 63 Year

DRUGS (14)
  1. ROSUVASTATIN [Suspect]
     Active Substance: ROSUVASTATIN
     Dosage: 10 MILLIGRAM, QD
     Route: 065
  2. ROSUVASTATIN [Suspect]
     Active Substance: ROSUVASTATIN
     Dosage: 10 MILLIGRAM, QD
     Route: 065
  3. ROSUVASTATIN [Suspect]
     Active Substance: ROSUVASTATIN
     Dosage: 10 MILLIGRAM, QD
     Route: 065
  4. ROSUVASTATIN [Suspect]
     Active Substance: ROSUVASTATIN
     Dosage: 10 MILLIGRAM, QD
     Route: 065
  5. TOZINAMERAN [Suspect]
     Active Substance: TOZINAMERAN
     Dosage: UNK
     Route: 065
  6. TOZINAMERAN [Suspect]
     Active Substance: TOZINAMERAN
     Dosage: UNK
     Route: 065
  7. TOZINAMERAN [Suspect]
     Active Substance: TOZINAMERAN
     Dosage: UNK UNK, SINGLE
     Route: 065
  8. TOZINAMERAN [Suspect]
     Active Substance: TOZINAMERAN
     Dosage: UNK UNK, SINGLE
     Route: 065
  9. METOPROLOL [Concomitant]
     Active Substance: METOPROLOL
     Indication: Palpitations
     Dosage: 25 MILLIGRAM, BID
     Route: 065
  10. METOPROLOL [Concomitant]
     Active Substance: METOPROLOL
     Dosage: 25 MILLIGRAM, BID
     Route: 065
  11. ZYRTEC [Concomitant]
     Active Substance: CETIRIZINE HYDROCHLORIDE
     Indication: Hypersensitivity
     Dosage: 10 MILLIGRAM, QD
     Route: 065
  12. ZYRTEC [Concomitant]
     Active Substance: CETIRIZINE HYDROCHLORIDE
     Dosage: 10 MILLIGRAM, QD
     Route: 065
  13. PROTONIX [Concomitant]
     Active Substance: PANTOPRAZOLE SODIUM
     Indication: Gastrooesophageal reflux disease
     Dosage: UNK, QD
     Route: 065
  14. PROTONIX [Concomitant]
     Active Substance: PANTOPRAZOLE SODIUM
     Dosage: UNK, QD
     Route: 065

REACTIONS (3)
  - Infected seroma [Not Recovered/Not Resolved]
  - Vascular device infection [Recovering/Resolving]
  - Neuralgia [Not Recovered/Not Resolved]
